FAERS Safety Report 19621599 (Version 1)
Quarter: 2021Q3

REPORT INFORMATION
  Report Type: Spontaneous
  Country: US (occurrence: US)
  Receive Date: 20210728
  Receipt Date: 20210728
  Transmission Date: 20211014
  Serious: No
  Sender: FDA-Public Use
  Company Number: US-ASTRAZENECA-2021A601498

PATIENT
  Age: 85 Year
  Sex: Male
  Weight: 97.5 kg

DRUGS (1)
  1. FARXIGA [Suspect]
     Active Substance: DAPAGLIFLOZIN PROPANEDIOL
     Indication: CARDIAC FAILURE
     Route: 048
     Dates: start: 202103, end: 202104

REACTIONS (3)
  - Pollakiuria [Recovering/Resolving]
  - Urinary tract infection [Recovering/Resolving]
  - Penile discharge [Recovering/Resolving]

NARRATIVE: CASE EVENT DATE: 202104
